FAERS Safety Report 6678774-9 (Version None)
Quarter: 2010Q2

REPORT INFORMATION
  Report Type: 
  Country: None (occurrence: None)
  Receive Date: 20100413
  Receipt Date: 20100405
  Transmission Date: 20101027
  Serious: Yes (Hospitalization)
  Sender: FDA-Public Use
  Company Number: US-JNJFOC-20100302746

PATIENT
  Sex: Female
  Weight: 58.06 kg

DRUGS (9)
  1. DURAGESIC-100 [Suspect]
     Indication: PAIN
     Route: 062
  2. PREDNISOLONE [Concomitant]
     Indication: INFLAMMATION
     Route: 048
  3. CYMBALTA [Concomitant]
     Indication: FIBROMYALGIA
     Route: 048
  4. CYMBALTA [Concomitant]
     Indication: BIPOLAR DISORDER
     Route: 048
  5. VITAMIN D [Concomitant]
     Indication: VITAMIN D DEFICIENCY
     Dosage: 50000 UNITS ONCE WEEKLY
     Route: 048
  6. FOLIC ACID [Concomitant]
     Route: 048
  7. VIRACEPT [Concomitant]
     Indication: HIV INFECTION
     Route: 048
  8. TRUVADA [Concomitant]
     Indication: HIV INFECTION
     Dosage: 200-300 MG TABLET ONCE DAILY
     Route: 048
  9. FLEXERIL [Concomitant]
     Indication: MUSCLE DISORDER
     Route: 048

REACTIONS (14)
  - APPLICATION SITE PAIN [None]
  - APPLICATION SITE RASH [None]
  - COMA [None]
  - CONVULSION [None]
  - DRUG EFFECT DECREASED [None]
  - FATIGUE [None]
  - FEELING COLD [None]
  - HEADACHE [None]
  - HOT FLUSH [None]
  - HYPERHIDROSIS [None]
  - HYPERSOMNIA [None]
  - MENINGITIS CRYPTOCOCCAL [None]
  - PRURITUS [None]
  - PYREXIA [None]
